FAERS Safety Report 4490373-6 (Version None)
Quarter: 2004Q3

REPORT INFORMATION
  Report Type: 
  Country: None (occurrence: None)
  Receive Date: 20040921
  Receipt Date: 20031107
  Transmission Date: 20050211
  Serious: Yes (Hospitalization)
  Sender: FDA-Public Use
  Company Number: 163-20785-03110138

PATIENT
  Age: 69 Year
  Sex: Male

DRUGS (8)
  1. THALOMID [Suspect]
     Indication: MULTIPLE MYELOMA
     Dosage: 100 MG, DAILY, ORAL
     Route: 048
     Dates: start: 20030704
  2. MELPHALAN (MELPHALAN) [Suspect]
     Indication: MULTIPLE MYELOMA
     Dosage: 394 MG, DAILY, INTRAVENOUS
     Route: 042
     Dates: start: 20031012
  3. DEXAMETHASONE [Suspect]
     Indication: MULTIPLE MYELOMA
     Dates: start: 20030704
  4. CISPLATIN [Suspect]
     Indication: MULTIPLE MYELOMA
     Dates: start: 20030704
  5. ADRIAMYCIN PFS [Suspect]
     Indication: MULTIPLE MYELOMA
     Dates: start: 20030704
  6. CYCLOPHOSPHAMIDE [Suspect]
     Indication: MULTIPLE MYELOMA
     Dates: start: 20030704
  7. ETOPOSIDE [Suspect]
     Indication: MULTIPLE MYELOMA
     Dates: start: 20030704
  8. .. [Concomitant]

REACTIONS (4)
  - BACTERIAL INFECTION [None]
  - C-REACTIVE PROTEIN INCREASED [None]
  - CLOSTRIDIUM COLITIS [None]
  - DIARRHOEA [None]
